FAERS Safety Report 4827578-8 (Version None)
Quarter: 2005Q4

REPORT INFORMATION
  Report Type: 
  Country: None (occurrence: None)
  Receive Date: 20051114
  Receipt Date: 20010822
  Transmission Date: 20060501
  Serious: Yes (Death, Hospitalization)
  Sender: FDA-Public Use
  Company Number: US-JNJFOC-20051101803

PATIENT
  Age: 23 Year
  Sex: Male

DRUGS (3)
  1. EXTRA STRENGTH TYLENOL [Suspect]
     Route: 048
  2. EXTRA STRENGTH TYLENOL [Suspect]
     Indication: DRUG USE FOR UNKNOWN INDICATION
     Route: 048
  3. BIAXIN XL [Suspect]
     Indication: MONOCYTOSIS
     Route: 048

REACTIONS (3)
  - DEATH [None]
  - HEPATIC FAILURE [None]
  - RENAL FAILURE [None]
